FAERS Safety Report 8207306-9 (Version None)
Quarter: 2012Q1

REPORT INFORMATION
  Report Type: 
  Country: None (occurrence: None)
  Receive Date: 20120314
  Receipt Date: 20120306
  Transmission Date: 20120608
  Serious: Yes (Hospitalization)
  Sender: FDA-Public Use
  Company Number: DE-UCBSA-044524

PATIENT
  Age: 71 Year
  Sex: Female

DRUGS (31)
  1. NEUPRO [Suspect]
     Route: 062
     Dates: start: 20101022, end: 20101027
  2. NEUPRO [Suspect]
     Route: 062
     Dates: start: 20090701, end: 20091001
  3. SEROQUEL [Concomitant]
     Indication: HALLUCINATION
     Route: 048
     Dates: start: 20110512, end: 20110917
  4. LEVOTHYROXINE SODIUM [Suspect]
     Indication: THYROID OPERATION
     Route: 048
     Dates: start: 20100801
  5. ENALAPRIL PLUS [Concomitant]
     Indication: HYPERTENSION
     Dates: start: 20110901, end: 20110101
  6. MADOPAR [Concomitant]
     Dates: start: 20110516, end: 20110516
  7. NEUPRO [Suspect]
     Route: 062
     Dates: start: 20091001, end: 20100401
  8. NEUPRO [Suspect]
     Route: 062
     Dates: start: 20091001, end: 20091001
  9. TORSEMIDE [Suspect]
     Indication: HYPERTENSION
     Route: 048
     Dates: start: 20110512, end: 20110917
  10. LEVOPAR [Concomitant]
     Dosage: FREQUENCY: 1/2-0-1/2
     Dates: start: 20100416, end: 20100419
  11. MADOPAR [Concomitant]
     Dates: start: 20110514, end: 20110515
  12. BISOPROLOL FUMARATE [Concomitant]
     Indication: HYPERTENSION
     Dates: start: 20110917
  13. AMANTADINE HCL [Concomitant]
     Dates: start: 20101021
  14. MADOPAR [Concomitant]
     Dates: start: 20110517, end: 20111208
  15. METROPLROLOL [Concomitant]
     Indication: HYPERTENSION
     Route: 048
     Dates: end: 20110917
  16. SIMVASTATIN [Concomitant]
     Dates: start: 20110512
  17. ENALAPRIL PLUS [Concomitant]
     Route: 048
     Dates: start: 20100415, end: 20110401
  18. AMLODIPINE [Concomitant]
     Indication: HYPERTENSION
     Dates: start: 20110917
  19. NEUPRO [Suspect]
     Indication: PARKINSON'S DISEASE
     Route: 062
     Dates: start: 20101028, end: 20110512
  20. LEVOPAR [Concomitant]
     Dosage: FREQUENCY: 1/2-0-0 (100 MG TABLET)
     Dates: start: 20100420, end: 20100430
  21. ENALAPRIL MALEATE [Concomitant]
     Indication: HYPERTENSION
     Route: 048
  22. SIMVASTATIN [Concomitant]
     Indication: BLOOD CHOLESTEROL INCREASED
     Route: 048
  23. SPIRONOLACTONE [Concomitant]
     Indication: HYPERTENSION
     Dates: start: 20110917
  24. LEVOPAR [Concomitant]
     Dates: end: 20100415
  25. AMANTADINE HCL [Concomitant]
     Dates: end: 20091001
  26. MADOPAR LT [Concomitant]
     Dates: start: 20110515
  27. MADOPAR [Concomitant]
     Dates: start: 20110513, end: 20110513
  28. NEUPRO [Suspect]
     Route: 062
     Dates: start: 20101001, end: 20101001
  29. AZILECT [Concomitant]
     Dates: start: 20110512
  30. MADOPAR [Concomitant]
     Dates: start: 20111209
  31. ENALAPRIL PLUS [Concomitant]
     Dosage: 10/25 MG
     Dates: start: 20110512

REACTIONS (6)
  - TACHYARRHYTHMIA [None]
  - ATRIAL FIBRILLATION [None]
  - THYROID DISORDER [None]
  - HYPOKALAEMIA [None]
  - HYPOCALCAEMIA [None]
  - OFF LABEL USE [None]
